FAERS Safety Report 4673114-9 (Version None)
Quarter: 2005Q2

REPORT INFORMATION
  Report Type: 
  Country: None (occurrence: None)
  Receive Date: 20050524
  Receipt Date: 20050524
  Transmission Date: 20051028
  Serious: Yes (Hospitalization)
  Sender: FDA-Public Use
  Company Number: None

PATIENT
  Age: 68 Year
  Sex: Female
  Weight: 86.1834 kg

DRUGS (9)
  1. ALLOPURINOL 100MG TAB [Suspect]
     Indication: GOUT
     Dosage: 100MG  BID ORAL
     Route: 048
     Dates: start: 20050330, end: 20050430
  2. CLAFORAN [Concomitant]
  3. ZITHROMYCIN [Concomitant]
  4. VANCOMYCIN [Concomitant]
  5. PROTONOIX [Concomitant]
  6. COLCHICINE [Concomitant]
  7. LISINOPRIL [Concomitant]
  8. ACTOS [Concomitant]
  9. PLAVIX [Concomitant]

REACTIONS (9)
  - BLOOD CALCIUM INCREASED [None]
  - BODY TEMPERATURE INCREASED [None]
  - DYSPHAGIA [None]
  - EYE INFECTION [None]
  - MASS [None]
  - PARATHYROID DISORDER [None]
  - RENAL FAILURE ACUTE [None]
  - STEVENS-JOHNSON SYNDROME [None]
  - UPPER RESPIRATORY TRACT INFECTION [None]
